FAERS Safety Report 6317116-5 (Version None)
Quarter: 2009Q3

REPORT INFORMATION
  Report Type: 
  Country: None (occurrence: None)
  Receive Date: 20090819
  Receipt Date: 20090804
  Transmission Date: 20100115
  Serious: Yes (Hospitalization)
  Sender: FDA-Public Use
  Company Number: AUR-APL-2009-00350

PATIENT
  Age: 30 Year
  Sex: Female

DRUGS (2)
  1. CEFTRIAXONE [Suspect]
  2. VALPROIC ACID [Concomitant]

REACTIONS (6)
  - ALANINE AMINOTRANSFERASE INCREASED [None]
  - ANGIOEDEMA [None]
  - ASPARTATE AMINOTRANSFERASE INCREASED [None]
  - DRUG RASH WITH EOSINOPHILIA AND SYSTEMIC SYMPTOMS [None]
  - LYMPHOCYTE TRANSFORMATION TEST POSITIVE [None]
  - SKIN TEST POSITIVE [None]
